FAERS Safety Report 18192843 (Version 1)
Quarter: 2020Q3

REPORT INFORMATION
  Report Type: Spontaneous
  Country: CM (occurrence: CM)
  Receive Date: 20200825
  Receipt Date: 20200825
  Transmission Date: 20201103
  Serious: Yes (Hospitalization)
  Sender: FDA-Public Use
  Company Number: NVSC2020CM231167

PATIENT
  Age: 6 Year
  Sex: Female

DRUGS (1)
  1. CATAFLAM [Suspect]
     Active Substance: DICLOFENAC POTASSIUM
     Indication: ORAL PAIN
     Dosage: 50 MG, QD
     Route: 048
     Dates: start: 20200715, end: 20200716

REACTIONS (6)
  - Eye inflammation [Recovering/Resolving]
  - Haematemesis [Recovering/Resolving]
  - Rash [Recovering/Resolving]
  - Aphthous ulcer [Recovering/Resolving]
  - Ocular hyperaemia [Recovering/Resolving]
  - Conjunctivitis [Recovering/Resolving]

NARRATIVE: CASE EVENT DATE: 20200715
